FAERS Safety Report 17556721 (Version 1)
Quarter: 2020Q1

REPORT INFORMATION
  Report Type: Spontaneous
  Country: US (occurrence: US)
  Receive Date: 20200311
  Receipt Date: 20200311
  Transmission Date: 20200409
  Serious: Yes (Other)
  Sender: FDA-Public Use
  Company Number: None

PATIENT
  Age: 57 Year
  Sex: Female

DRUGS (1)
  1. CUVITRU [Suspect]
     Active Substance: HUMAN IMMUNOGLOBULIN G
     Indication: IMMUNODEFICIENCY COMMON VARIABLE
     Dosage: ?          OTHER STRENGTH:2GM/10ML;?
     Route: 058
     Dates: start: 20180801

REACTIONS (5)
  - Body temperature increased [None]
  - Nonspecific reaction [None]
  - Urticaria [None]
  - Erythema [None]
  - Presyncope [None]

NARRATIVE: CASE EVENT DATE: 202001
